FAERS Safety Report 15265488 (Version 1)
Quarter: 2018Q3

REPORT INFORMATION
  Report Type: Spontaneous
  Country: US (occurrence: US)
  Receive Date: 20180810
  Receipt Date: 20180810
  Transmission Date: 20181010
  Serious: Yes (Other)
  Sender: FDA-Public Use
  Company Number: US-PARI RESPIRATORY EQUIPMENT, INC.-2018PAR00043

PATIENT
  Age: 61 Year
  Sex: Male

DRUGS (3)
  1. SYMDEKO [Concomitant]
     Active Substance: IVACAFTOR\TEZACAFTOR
  2. PULMOZYME [Concomitant]
     Active Substance: DORNASE ALFA
  3. KITABIS PAK [Suspect]
     Active Substance: TOBRAMYCIN
     Indication: CYSTIC FIBROSIS
     Dosage: 300 MG, 2X/DAY
     Route: 055
     Dates: start: 2016

REACTIONS (1)
  - Hernia [Unknown]

NARRATIVE: CASE EVENT DATE: 201803
